FAERS Safety Report 4731307-6 (Version None)
Quarter: 2005Q3

REPORT INFORMATION
  Report Type: 
  Country: None (occurrence: None)
  Receive Date: 20050802
  Receipt Date: 20050624
  Transmission Date: 20060218
  Serious: Yes (Hospitalization, Other)
  Sender: FDA-Public Use
  Company Number: FRWYE773524JUN05

PATIENT
  Sex: Female

DRUGS (6)
  1. ENBREL [Suspect]
     Indication: RHEUMATOID ARTHRITIS
     Dosage: UNKNOWN
     Route: 058
     Dates: start: 20020301, end: 20050601
  2. NOVATREX [Suspect]
     Dosage: UNKNOWN
     Route: 048
     Dates: start: 20020301, end: 20050101
  3. SPECIAFOLDINE [Concomitant]
     Dates: start: 20020301, end: 20050101
  4. ACTONEL [Concomitant]
     Dates: start: 20021115
  5. ACETAMINOPHEN [Concomitant]
  6. HUMALOG [Concomitant]
     Dates: start: 19860101

REACTIONS (2)
  - GALLBLADDER CANCER STAGE IV [None]
  - METASTASES TO LIVER [None]
